FAERS Safety Report 5680471-3 (Version None)
Quarter: 2008Q1

REPORT INFORMATION
  Report Type: 
  Country: None (occurrence: None)
  Receive Date: 20080326
  Receipt Date: 20080325
  Transmission Date: 20080703
  Serious: Yes (Life-Threatening, Hospitalization, Other)
  Sender: FDA-Public Use
  Company Number: B0513162A

PATIENT
  Age: 87 Year
  Sex: Male
  Weight: 50 kg

DRUGS (10)
  1. ARIXTRA [Suspect]
     Indication: JOINT ARTHROPLASTY
     Dosage: 2.5MG PER DAY
     Route: 058
     Dates: start: 20080301, end: 20080314
  2. LENDORMIN [Concomitant]
     Route: 048
  3. EVIPROSTAT [Concomitant]
     Route: 048
  4. URINORM [Concomitant]
     Route: 048
  5. URALYT [Concomitant]
     Route: 048
  6. ARICEPT [Concomitant]
     Route: 048
  7. PERDIPINE LA [Concomitant]
     Route: 048
  8. MYSLEE [Concomitant]
     Route: 048
  9. RACOL [Concomitant]
     Route: 065
  10. RINDERON [Concomitant]
     Route: 031

REACTIONS (1)
  - CEREBRAL HAEMORRHAGE [None]
